FAERS Safety Report 8289442-4 (Version None)
Quarter: 2012Q2

REPORT INFORMATION
  Report Type: 
  Country: None (occurrence: None)
  Receive Date: 20120417
  Receipt Date: 20120410
  Transmission Date: 20120825
  Serious: Yes (Other)
  Sender: FDA-Public Use
  Company Number: FR-ABBOTT-12P-056-0924430-00

PATIENT
  Age: 32 Year
  Sex: Female

DRUGS (4)
  1. HUMIRA [Suspect]
     Indication: ANKYLOSING SPONDYLITIS
     Route: 058
     Dates: start: 20110601, end: 20120201
  2. FLUOXETINE [Concomitant]
     Indication: DEPRESSION
     Dates: start: 20110401
  3. PENTASA [Concomitant]
     Indication: COLITIS ULCERATIVE
  4. TRIPHASIL-21 [Concomitant]
     Indication: PRODUCT USED FOR UNKNOWN INDICATION
     Dates: start: 20110901

REACTIONS (6)
  - GASTROOESOPHAGEAL REFLUX DISEASE [None]
  - DRY EYE [None]
  - CONJUNCTIVITIS [None]
  - BRONCHITIS [None]
  - KERATITIS [None]
  - INFLUENZA [None]
